FAERS Safety Report 6957850-7 (Version None)
Quarter: 2010Q3

REPORT INFORMATION
  Report Type: 
  Country: None (occurrence: None)
  Receive Date: 20100831
  Receipt Date: 20100820
  Transmission Date: 20110219
  Serious: Yes (Other)
  Sender: FDA-Public Use
  Company Number: US-BAYER-201031312NA

PATIENT
  Age: 23 Year
  Sex: Female

DRUGS (6)
  1. BETASERON [Suspect]
     Indication: RELAPSING-REMITTING MULTIPLE SCLEROSIS
     Dosage: TOTAL DAILY DOSE: 2 MIU
     Route: 058
     Dates: start: 20100802
  2. BETASERON [Suspect]
     Route: 058
     Dates: start: 20080408, end: 20090617
  3. BETASERON [Suspect]
     Route: 058
     Dates: end: 20090730
  4. BETASERON [Suspect]
     Route: 058
     Dates: start: 20100405
  5. BETASERON [Suspect]
     Route: 065
     Dates: end: 20090501
  6. TYLENOL-500 [Concomitant]

REACTIONS (7)
  - BLOOD PRESSURE INCREASED [None]
  - COUGH [None]
  - NASAL CONGESTION [None]
  - PREGNANCY [None]
  - PREMATURE BABY [None]
  - ROAD TRAFFIC ACCIDENT [None]
  - SWELLING [None]
